FAERS Safety Report 5218604-5 (Version None)
Quarter: 2007Q1

REPORT INFORMATION
  Report Type: 
  Country: None (occurrence: None)
  Receive Date: 20070122
  Receipt Date: 20070105
  Transmission Date: 20070707
  Serious: Yes (Hospitalization, Disabling)
  Sender: FDA-Public Use
  Company Number: 8021233

PATIENT
  Age: 35 Year
  Sex: Male

DRUGS (2)
  1. KEPPRA [Suspect]
     Indication: EPILEPSY
     Dosage: 750 MG
     Dates: start: 20060314
  2. DEPAKOTE [Suspect]
     Indication: EPILEPSY
     Dosage: 1500 MG
     Dates: start: 20060314

REACTIONS (3)
  - ABASIA [None]
  - MENINGIOMA [None]
  - NEOPLASM PROGRESSION [None]
